FAERS Safety Report 13463881 (Version 1)
Quarter: 2017Q2

REPORT INFORMATION
  Report Type: Spontaneous
  Country: US (occurrence: US)
  Receive Date: 20170420
  Receipt Date: 20170420
  Transmission Date: 20170830
  Serious: Yes (Other)
  Sender: FDA-Public Use
  Company Number: US-ROCHE-657271

PATIENT
  Age: 16 Year
  Sex: Female
  Weight: 59.9 kg

DRUGS (9)
  1. ACCUTANE [Suspect]
     Active Substance: ISOTRETINOIN
     Route: 065
     Dates: start: 20020415, end: 20020513
  2. AMNESTEEM [Suspect]
     Active Substance: ISOTRETINOIN
     Indication: ACNE
     Route: 065
     Dates: start: 200401, end: 20040203
  3. ACCUTANE [Suspect]
     Active Substance: ISOTRETINOIN
     Indication: ACNE
     Route: 065
     Dates: start: 199909, end: 199911
  4. ACCUTANE [Suspect]
     Active Substance: ISOTRETINOIN
     Route: 065
     Dates: start: 200203, end: 20020415
  5. ACCUTANE [Suspect]
     Active Substance: ISOTRETINOIN
     Route: 065
     Dates: start: 199911, end: 200002
  6. ACCUTANE [Suspect]
     Active Substance: ISOTRETINOIN
     Route: 065
     Dates: start: 20020513, end: 20020926
  7. ACCUTANE [Suspect]
     Active Substance: ISOTRETINOIN
     Route: 065
     Dates: start: 200002, end: 200003
  8. AMNESTEEM [Suspect]
     Active Substance: ISOTRETINOIN
     Route: 065
     Dates: start: 20040203, end: 200407
  9. FEMCON FE [Concomitant]
     Active Substance: ETHINYL ESTRADIOL\NORETHINDRONE ACETATE
     Indication: CONTRACEPTION
     Route: 065

REACTIONS (8)
  - Crohn^s disease [Unknown]
  - Sunburn [Recovering/Resolving]
  - Lip dry [Unknown]
  - Blood triglycerides increased [Recovered/Resolved]
  - Inflammatory bowel disease [Unknown]
  - Depression [Unknown]
  - Acne [Unknown]
  - Dry skin [Unknown]

NARRATIVE: CASE EVENT DATE: 20020415
